FAERS Safety Report 8016967-9 (Version None)
Quarter: 2012Q1

REPORT INFORMATION
  Report Type: 
  Country: None (occurrence: None)
  Receive Date: 20120102
  Receipt Date: 20111227
  Transmission Date: 20120608
  Serious: Yes (Life-Threatening, Other)
  Sender: FDA-Public Use
  Company Number: PHHY2011TR71633

PATIENT
  Sex: Female

DRUGS (2)
  1. AFINITOR [Suspect]
     Indication: ANGIOMYOLIPOMA
     Dosage: 10 MG
     Route: 048
     Dates: start: 20110501, end: 20110515
  2. AFINITOR [Suspect]
     Dosage: 10 MG
     Route: 048
     Dates: start: 20110616

REACTIONS (1)
  - INTESTINAL ISCHAEMIA [None]
